FAERS Safety Report 9726928 (Version 1)
Quarter: 2013Q4

REPORT INFORMATION
  Report Type: Spontaneous
  Country: JP (occurrence: None)
  Receive Date: 20131129
  Receipt Date: 20131129
  Transmission Date: 20140711
  Serious: Yes (Other)
  Sender: FDA-Public Use
  Company Number: AG-2013-015989

PATIENT
  Age: 1 Year
  Sex: Female

DRUGS (3)
  1. MELPHALAN [Suspect]
     Indication: BONE MARROW CONDITIONING REGIMEN
     Route: 042
  2. BUSULFAN [Suspect]
     Indication: BONE MARROW CONDITIONING REGIMEN
  3. ETOPOSIDE [Suspect]
     Indication: BONE MARROW CONDITIONING REGIMEN

REACTIONS (6)
  - Growth hormone deficiency [None]
  - Hypothyroidism [None]
  - Leukoencephalopathy [None]
  - Epilepsy [None]
  - Primary hypogonadism [None]
  - Graft versus host disease [None]
